FAERS Safety Report 23388331 (Version 3)
Quarter: 2024Q1

REPORT INFORMATION
  Report Type: Report from Study
  Country: US (occurrence: US)
  Receive Date: 20240110
  Receipt Date: 20240325
  Transmission Date: 20240410
  Serious: Yes (Hospitalization)
  Sender: FDA-Public Use
  Company Number: US-BAXTER-2024BAX010220

PATIENT
  Age: 61 Year
  Sex: Male
  Weight: 70.5 kg

DRUGS (35)
  1. IFOSFAMIDE [Suspect]
     Active Substance: IFOSFAMIDE
     Indication: Diffuse large B-cell lymphoma stage II
     Dosage: UNK, CYCLE 1 ARM 10, DOSAGE FORM: INFUSION, AS A PART OF R-ICE REGIMEN
     Route: 042
     Dates: start: 20231017, end: 20231018
  2. IFOSFAMIDE [Suspect]
     Active Substance: IFOSFAMIDE
     Dosage: UNK, DOSAGE FORM: INFUSION, CYCLE 2 ARM 10, AS A PART OF R-ICE REGIMEN
     Route: 042
     Dates: start: 20231114, end: 20231115
  3. IFOSFAMIDE [Suspect]
     Active Substance: IFOSFAMIDE
     Dosage: UNK, DOSAGE FORM: INFUSION, CYCLE 3, AS A PART OF R-ICE REGIMEN
     Route: 042
     Dates: start: 20231212, end: 20231213
  4. IFOSFAMIDE [Suspect]
     Active Substance: IFOSFAMIDE
     Dosage: 5000 MG/M2, AS A PART OF R-ICE REGIMEN, LAST DOSE PRIOR TO AE
     Route: 065
     Dates: start: 20231213
  5. BENDAMUSTINE [Suspect]
     Active Substance: BENDAMUSTINE
     Indication: Diffuse large B-cell lymphoma stage II
     Dosage: UNK, START DATE: APR-2023
     Route: 065
     Dates: end: 20230801
  6. EPCORITAMAB [Suspect]
     Active Substance: EPCORITAMAB
     Indication: Diffuse large B-cell lymphoma stage II
     Dosage: 0.16 MG, C1D1, PRIMING DOSE
     Route: 058
     Dates: start: 20231016, end: 20231016
  7. EPCORITAMAB [Suspect]
     Active Substance: EPCORITAMAB
     Dosage: 0.8 MG, C1D8, INTERMEDIATE DOSE
     Route: 058
     Dates: start: 20231025, end: 20231025
  8. EPCORITAMAB [Suspect]
     Active Substance: EPCORITAMAB
     Dosage: 48 MG, FULL DOSE, C1D15- ONWARDS, ONGOING
     Route: 058
     Dates: start: 20231101
  9. EPCORITAMAB [Suspect]
     Active Substance: EPCORITAMAB
     Dosage: 48 MG, CYCLE 3 DAY 15 (C3D15), PRIOR TO THE EVENT ONSET
     Route: 065
     Dates: start: 20231218
  10. RITUXIMAB [Suspect]
     Active Substance: RITUXIMAB
     Indication: Diffuse large B-cell lymphoma stage II
     Dosage: UNK, CYCLE 1 (ONGOING), AS A PART OF R-ICE REGIMEN
     Route: 042
     Dates: start: 20231016
  11. RITUXIMAB [Suspect]
     Active Substance: RITUXIMAB
     Dosage: 375 MG/M2, AS A PART OF R-ICE REGIMEN
     Route: 065
     Dates: start: 20231211
  12. ETOPOSIDE [Suspect]
     Active Substance: ETOPOSIDE
     Indication: Diffuse large B-cell lymphoma stage II
     Dosage: UNK, CYCLE 1 ARM 10, AS A PART OF R-ICE REGIMEN
     Route: 042
     Dates: start: 20231016, end: 20231018
  13. ETOPOSIDE [Suspect]
     Active Substance: ETOPOSIDE
     Dosage: UNK, CYCLE 2 ARM 10, AS A PART OF R-ICE REGIMEN
     Route: 042
     Dates: start: 20231113, end: 20231115
  14. ETOPOSIDE [Suspect]
     Active Substance: ETOPOSIDE
     Dosage: UNK, C3, AS A PART OF R-ICE REGIMEN
     Route: 042
     Dates: start: 20231211, end: 20231213
  15. ETOPOSIDE [Suspect]
     Active Substance: ETOPOSIDE
     Dosage: 100 MG/M2, AS A PART OF R-ICE REGIMEN
     Route: 065
     Dates: start: 20231213
  16. CARBOPLATIN [Suspect]
     Active Substance: CARBOPLATIN
     Indication: Diffuse large B-cell lymphoma stage II
     Dosage: 645 MG, C1- (5 AUC, 1Q3W), ONGOING, AS A PART OF R-ICE REGIMEN
     Route: 042
     Dates: start: 20231017
  17. CARBOPLATIN [Suspect]
     Active Substance: CARBOPLATIN
     Dosage: UNK, 5 AUC, AS A PART OF R-ICE REGIMEN
     Route: 065
     Dates: start: 20231212
  18. LEVAQUIN [Concomitant]
     Active Substance: LEVOFLOXACIN
     Dosage: UNK, ONGOING
     Route: 065
     Dates: start: 20220227
  19. PROTONIX [Concomitant]
     Active Substance: PANTOPRAZOLE SODIUM
     Dosage: UNK, START DATE: 2022, ONGOING
     Route: 065
  20. NORCO [Concomitant]
     Active Substance: ACETAMINOPHEN\HYDROCODONE BITARTRATE
     Dosage: UNK, START DATE: 2022, ONGOING
     Route: 065
  21. Dulcolax [Concomitant]
     Dosage: UNK, START DATE: 2020, ONGOING
     Route: 065
  22. TYLENOL EXTRA STRENGTH [Concomitant]
     Active Substance: ACETAMINOPHEN
     Dosage: UNK, START DATE: 2020, ONGOING
     Route: 065
  23. ZYLOPRIM [Concomitant]
     Active Substance: ALLOPURINOL
     Dosage: UNK, ONGOING
     Route: 065
     Dates: start: 20220211
  24. ZOVIRAX [Concomitant]
     Active Substance: ACYCLOVIR
     Dosage: UNK, ONGOING
     Route: 065
     Dates: start: 20220225
  25. FLEXERIL [Concomitant]
     Active Substance: CYCLOBENZAPRINE HYDROCHLORIDE
     Dosage: UNK, START DATE: 2021, ONGOING
     Route: 065
  26. BIOTIN [Concomitant]
     Active Substance: BIOTIN
     Dosage: UNK, START DATE: 2020, ONGOING
     Route: 065
  27. VITAMIN C [Concomitant]
     Active Substance: ASCORBIC ACID
     Dosage: UNK, START DATE: 2020, ONGOING
     Route: 065
  28. ZINCATE [Concomitant]
     Dosage: UNK, START DATE: 2020, ONGOING
     Route: 065
  29. ELIQUIS [Concomitant]
     Active Substance: APIXABAN
     Dosage: UNL, ONGOING
     Route: 065
     Dates: start: 20220225
  30. NEURONTIN [Concomitant]
     Active Substance: GABAPENTIN
     Dosage: UNK, START DATE: 2022, ONGOING
     Route: 065
  31. VITAMIN D3 [Concomitant]
     Active Substance: CHOLECALCIFEROL
     Dosage: UNK, START DATE: 2020, ONGOING
     Route: 065
  32. ESTRACE [Concomitant]
     Active Substance: ESTRADIOL
     Dosage: UNK, START DATE: 2012, ONGOING
     Route: 065
  33. PROSCAR [Concomitant]
     Active Substance: FINASTERIDE
     Dosage: UNK, START DATE: 2012, ONGOING
     Route: 065
  34. PROMETRIUM [Concomitant]
     Active Substance: PROGESTERONE
     Dosage: UNK, START DATE: 2012, ONGOING
     Route: 065
  35. BENADRYL [Concomitant]
     Active Substance: DIPHENHYDRAMINE HYDROCHLORIDE
     Indication: Premedication
     Dosage: 25 MG
     Route: 042
     Dates: start: 20231218, end: 20231218

REACTIONS (1)
  - Epistaxis [Recovered/Resolved]

NARRATIVE: CASE EVENT DATE: 20231224
